FAERS Safety Report 5052977-1 (Version None)
Quarter: 2006Q3

REPORT INFORMATION
  Report Type: 
  Country: None (occurrence: None)
  Receive Date: 20060712
  Receipt Date: 20060630
  Transmission Date: 20061208
  Serious: Yes (Other)
  Sender: FDA-Public Use
  Company Number: 2006065306

PATIENT
  Sex: Female

DRUGS (3)
  1. GLUCOTROL [Suspect]
     Indication: DIABETES MELLITUS
  2. AVANDIA [Suspect]
     Indication: DIABETES MELLITUS
     Dosage: ORAL
     Route: 048
  3. GLUCOPHAGE [Suspect]
     Indication: DIABETES MELLITUS

REACTIONS (1)
  - ANAEMIA [None]
